FAERS Safety Report 10097237 (Version 1)
Quarter: 2014Q2

REPORT INFORMATION
  Report Type: Spontaneous
  Country: JP (occurrence: JP)
  Receive Date: 20140422
  Receipt Date: 20140422
  Transmission Date: 20141212
  Serious: Yes (Hospitalization, Other)
  Sender: FDA-Public Use
  Company Number: PHHY2014JP048586

PATIENT
  Sex: 0

DRUGS (3)
  1. NEORAL [Suspect]
     Indication: NEPHROTIC SYNDROME
     Dosage: UNK UKN, UNK
     Route: 048
  2. PREDONINE [Concomitant]
     Dosage: UNK UKN, UNK
  3. PREDONINE [Concomitant]
     Dosage: DOSE REDUCED 3 TABLETS

REACTIONS (2)
  - Haematoma [Unknown]
  - Nephrotic syndrome [Unknown]
